FAERS Safety Report 23040938 (Version 1)
Quarter: 2023Q4

REPORT INFORMATION
  Report Type: Spontaneous
  Country: US (occurrence: US)
  Receive Date: 20231006
  Receipt Date: 20231006
  Transmission Date: 20240110
  Serious: No
  Sender: FDA-Public Use
  Company Number: US-JUBILANT CADISTA PHARMACEUTICALS-2022JUB00440

PATIENT
  Sex: Male
  Weight: 100 kg

DRUGS (46)
  1. PREDNISONE [Suspect]
     Active Substance: PREDNISONE
     Indication: Product used for unknown indication
     Dosage: 40 MG
     Dates: start: 20220805, end: 202208
  2. PREDNISONE [Suspect]
     Active Substance: PREDNISONE
     Dosage: 60 MG
     Dates: start: 20220808, end: 202208
  3. PREDNISONE [Suspect]
     Active Substance: PREDNISONE
     Dosage: 30 MG
     Dates: start: 20220812, end: 2022
  4. PREDNISONE [Suspect]
     Active Substance: PREDNISONE
     Dosage: 60 MG
     Dates: start: 20220829, end: 2022
  5. PREDNISONE [Suspect]
     Active Substance: PREDNISONE
     Dosage: 40 MG
     Dates: start: 20220923, end: 2022
  6. PREDNISONE [Suspect]
     Active Substance: PREDNISONE
     Dosage: 30 MG
     Dates: start: 20220925, end: 2022
  7. PREDNISONE [Suspect]
     Active Substance: PREDNISONE
     Dosage: 20 MG
     Dates: start: 20221012, end: 2022
  8. PREDNISONE [Suspect]
     Active Substance: PREDNISONE
     Dosage: 15 MG
     Dates: start: 20221109, end: 202211
  9. PREDNISONE [Suspect]
     Active Substance: PREDNISONE
     Dosage: 20 MG
     Dates: start: 20221123
  10. PREDNISONE [Suspect]
     Active Substance: PREDNISONE
     Dosage: 10 MG
  11. XOSPATA [Suspect]
     Active Substance: GILTERITINIB
     Indication: Acute myeloid leukaemia (in remission)
     Dosage: 120 MG, 1X/DAY
     Route: 048
     Dates: start: 20220601, end: 20220801
  12. XOSPATA [Suspect]
     Active Substance: GILTERITINIB
     Indication: Acute myeloid leukaemia
     Dosage: 120 MG, 1X/DAY
     Route: 048
     Dates: start: 20220609, end: 20220801
  13. XOSPATA [Suspect]
     Active Substance: GILTERITINIB
     Dosage: 120 MG, 1X/DAY
     Route: 048
     Dates: start: 20220817, end: 20220825
  14. XOSPATA [Suspect]
     Active Substance: GILTERITINIB
     Dosage: 80 MG, 1X/DAY
     Route: 048
     Dates: start: 20220826, end: 20220829
  15. XOSPATA [Suspect]
     Active Substance: GILTERITINIB
     Dosage: 80 MG, 1X/DAY
     Route: 048
     Dates: start: 20221012, end: 20230109
  16. ELIQUIS [Concomitant]
     Active Substance: APIXABAN
     Dosage: UNK
  17. ELIQUIS [Concomitant]
     Active Substance: APIXABAN
     Dosage: 2.5 MG TWICE DAILY
     Dates: start: 20220826
  18. PROGRAF [Concomitant]
     Active Substance: TACROLIMUS
     Dosage: 0.5 MG
  19. PROGRAF [Concomitant]
     Active Substance: TACROLIMUS
     Dosage: 1.5 MG TABLET
     Dates: start: 20220831
  20. ZOVIRAX [Concomitant]
     Active Substance: ACYCLOVIR
     Dosage: 400 MG
  21. ZYLOPRIM [Concomitant]
     Active Substance: ALLOPURINOL
     Dosage: UNK MG
  22. NORVASC [Concomitant]
     Active Substance: AMLODIPINE BESYLATE
     Dosage: UNK MG
  23. VITAMIN D3 [Concomitant]
     Active Substance: CHOLECALCIFEROL
     Dosage: UNK IU
  24. SINEQUAN [Concomitant]
     Active Substance: DOXEPIN HYDROCHLORIDE
     Dosage: UNK MG
  25. NEXIUM I.V. [Concomitant]
     Active Substance: ESOMEPRAZOLE SODIUM
     Dosage: UNK MG
  26. FLUOCINONIDE [Concomitant]
     Active Substance: FLUOCINONIDE
     Dosage: UNK %
  27. FOLVITE [Concomitant]
     Active Substance: FOLIC ACID
     Dosage: UNK MG
  28. ATARAX [Concomitant]
     Active Substance: HYDROXYZINE HYDROCHLORIDE
     Dosage: UNK MG
  29. ATIVAN [Concomitant]
     Active Substance: LORAZEPAM
     Dosage: UNK MG
  30. MAGNESIUM OXIDE [Concomitant]
     Active Substance: MAGNESIUM OXIDE
     Dosage: UNK MG
  31. LOPRESSOR [Concomitant]
     Active Substance: METOPROLOL TARTRATE
     Dosage: UNK MG
  32. PRAVACHOL [Concomitant]
     Active Substance: PRAVASTATIN SODIUM
     Dosage: UNK MG
  33. DELTASONE [Concomitant]
     Active Substance: PREDNISONE
     Dosage: UNK
  34. BACTRIM [Concomitant]
     Active Substance: SULFAMETHOXAZOLE\TRIMETHOPRIM
  35. UCERIS [Concomitant]
     Active Substance: BUDESONIDE
     Dosage: UNK MG
  36. MYCOSTATIN [Concomitant]
     Active Substance: NYSTATIN
     Dosage: SUSPENSION
  37. ZYPREXA ZYDIS [Concomitant]
     Active Substance: OLANZAPINE
     Dosage: UNK MG
  38. ZOFRAN [Concomitant]
     Active Substance: ONDANSETRON HYDROCHLORIDE
     Dosage: UNK MG
  39. RENVELA [Concomitant]
     Active Substance: SEVELAMER CARBONATE
     Dosage: UNK MG
  40. GEL KAM [Concomitant]
     Dosage: UNK %
  41. ACTIGALL [Concomitant]
     Active Substance: URSODIOL
     Dosage: UNK MG
  42. VANCOCIN [Concomitant]
     Active Substance: VANCOMYCIN HYDROCHLORIDE
  43. TESSALON [Concomitant]
     Active Substance: BENZONATATE
     Dosage: UNK
  44. COMPAZINE [Concomitant]
     Active Substance: PROCHLORPERAZINE MALEATE
     Dosage: UNK
  45. VITAMINS NOS [Concomitant]
     Active Substance: VITAMINS
     Dosage: 1 TABLETS, 1X/DAY
     Route: 048
  46. DIPHENHYDRAMINE HYDROCHLORIDE\LIDOCAINE HYDROCHLORIDE\NYSTATIN [Concomitant]
     Active Substance: DIPHENHYDRAMINE HYDROCHLORIDE\LIDOCAINE HYDROCHLORIDE\NYSTATIN
     Dosage: 10 ML, 4X/DAY (SUSPENSION BLM)

REACTIONS (3)
  - Rash pruritic [Recovered/Resolved]
  - Purpura [Recovered/Resolved]
  - Hepatic function abnormal [Unknown]

NARRATIVE: CASE EVENT DATE: 20220101
